FAERS Safety Report 7317891-7 (Version None)
Quarter: 2011Q1

REPORT INFORMATION
  Report Type: 
  Country: None (occurrence: None)
  Receive Date: 20110226
  Receipt Date: 20101228
  Transmission Date: 20110831
  Serious: No
  Sender: FDA-Public Use
  Company Number: US-ALLERGAN-1016773US

PATIENT
  Age: 28 Year
  Sex: Male

DRUGS (1)
  1. BOTOXA? [Suspect]
     Indication: MUSCLE SPASTICITY
     Dosage: UNK
     Dates: start: 20101201, end: 20101201

REACTIONS (1)
  - DIPLOPIA [None]
